FAERS Safety Report 16014608 (Version 1)
Quarter: 2019Q1

REPORT INFORMATION
  Report Type: Spontaneous
  Country: ES (occurrence: ES)
  Receive Date: 20190227
  Receipt Date: 20190227
  Transmission Date: 20190418
  Serious: Yes (Hospitalization, Other)
  Sender: FDA-Public Use
  Company Number: ES-TEVA-2019-ES-1015849

PATIENT
  Age: 67 Year
  Sex: Female

DRUGS (3)
  1. CISPLATINO (644A) [Interacting]
     Active Substance: CISPLATIN
     Dates: start: 20180419, end: 20180424
  2. ETOPOSIDO (518A) [Suspect]
     Active Substance: ETOPOSIDE
     Indication: NON-HODGKIN^S LYMPHOMA
     Dates: start: 20180419, end: 20180424
  3. CITARABINA (124A) [Interacting]
     Active Substance: CYTARABINE
     Dates: start: 20180419, end: 20180424

REACTIONS (5)
  - Hypokalaemia [Recovered/Resolved]
  - Vomiting [Recovered/Resolved]
  - Drug interaction [Unknown]
  - Bacteraemia [Recovered/Resolved]
  - Staphylococcal infection [Recovered/Resolved]

NARRATIVE: CASE EVENT DATE: 20180423
